FAERS Safety Report 20255018 (Version 1)
Quarter: 2021Q4

REPORT INFORMATION
  Report Type: Spontaneous
  Country: US (occurrence: US)
  Receive Date: 20211230
  Receipt Date: 20211230
  Transmission Date: 20220303
  Serious: Yes (Other)
  Sender: FDA-Public Use
  Company Number: US-PFIZER INC-202101830990

PATIENT
  Age: 5 Year
  Sex: Male

DRUGS (5)
  1. GABAPENTIN [Suspect]
     Active Substance: GABAPENTIN
     Dosage: 75 MG, 3X/DAY (250 MG / 5 ML) (1.5 ML)
  2. ONDANSETRON [Suspect]
     Active Substance: ONDANSETRON
     Dosage: UNK (4 MG/5 ML)
  3. MELATONIN [Suspect]
     Active Substance: MELATONIN
     Dosage: 1 MG/ML
  4. LOMUSTINE [Suspect]
     Active Substance: LOMUSTINE
     Dosage: UNK (10 MG/ 40 MG)
     Dates: start: 20210521
  5. TEMOZOLOMIDE [Suspect]
     Active Substance: TEMOZOLOMIDE
     Dosage: UNK (5MG/100 MG)
     Dates: start: 20210521

REACTIONS (1)
  - Tumour haemorrhage [Unknown]
